FAERS Safety Report 9268983 (Version 4)
Quarter: 2014Q1

REPORT INFORMATION
  Report Type: Spontaneous
  Country: US (occurrence: US)
  Receive Date: 20130503
  Receipt Date: 20140115
  Transmission Date: 20141002
  Serious: Yes (Hospitalization)
  Sender: FDA-Public Use
  Company Number: US-BIOGENIDEC-2013BI039440

PATIENT
  Age: 66 Year
  Sex: Female

DRUGS (13)
  1. TYSABRI [Suspect]
     Indication: MULTIPLE SCLEROSIS
     Route: 042
     Dates: start: 20120112, end: 20130429
  2. LIDODERM [Concomitant]
  3. FENTANYL PATCHES [Concomitant]
  4. ULTRAM [Concomitant]
  5. IMITREX [Concomitant]
  6. BACLOFEN [Concomitant]
  7. GABAPENTIN [Concomitant]
  8. NAPROXEN [Concomitant]
  9. SAVELLA [Concomitant]
  10. ALBUTEROL [Concomitant]
  11. SINGULAIR [Concomitant]
  12. REMERON [Concomitant]
  13. PROVIGIL [Concomitant]

REACTIONS (23)
  - Dyspnoea [Unknown]
  - Disorientation [Unknown]
  - Hypoaesthesia [Unknown]
  - Joint dislocation [Unknown]
  - Hyperaesthesia [Unknown]
  - Arthropathy [Unknown]
  - Neurogenic bowel [Unknown]
  - Bladder disorder [Unknown]
  - Waist circumference increased [Unknown]
  - Hypotonia [Unknown]
  - Alopecia [Unknown]
  - Skin atrophy [Unknown]
  - Photosensitivity reaction [Unknown]
  - Hyperacusis [Unknown]
  - Anaphylactic reaction [Recovered/Resolved]
  - Hypotension [Unknown]
  - Fatigue [Unknown]
  - Asthenia [Unknown]
  - Blood glucose decreased [Unknown]
  - Wheezing [Unknown]
  - Chills [Unknown]
  - Chest pain [Unknown]
  - Lip swelling [Unknown]
